FAERS Safety Report 20377784 (Version 1)
Quarter: 2022Q1

REPORT INFORMATION
  Report Type: Spontaneous
  Country: US (occurrence: US)
  Receive Date: 20220126
  Receipt Date: 20220126
  Transmission Date: 20220423
  Serious: No
  Sender: FDA-Public Use
  Company Number: US-IGSA-BIG0016250

PATIENT
  Age: 26 Year
  Sex: Male

DRUGS (1)
  1. XEMBIFY [Suspect]
     Active Substance: HUMAN IMMUNOGLOBULIN G
     Indication: Hypogammaglobulinaemia
     Dosage: 28 GRAM, Q.2WK.
     Route: 058

REACTIONS (1)
  - Infusion site scab [Unknown]
